FAERS Safety Report 11816804 (Version 1)
Quarter: 2015Q4

REPORT INFORMATION
  Report Type: Spontaneous
  Country: US (occurrence: US)
  Receive Date: 20151210
  Receipt Date: 20151210
  Transmission Date: 20160305
  Serious: No
  Sender: FDA-Public Use
  Company Number: US-JNJFOC-20151202434

PATIENT
  Age: 50 Year
  Sex: Female
  Weight: 97.07 kg

DRUGS (1)
  1. INVOKANA [Suspect]
     Active Substance: CANAGLIFLOZIN
     Indication: TYPE 2 DIABETES MELLITUS
     Route: 048

REACTIONS (4)
  - Unevaluable event [Unknown]
  - Glycosylated haemoglobin increased [Unknown]
  - Feeling abnormal [Unknown]
  - Dizziness [Unknown]
